FAERS Safety Report 9542071 (Version 2)
Quarter: 2013Q4

REPORT INFORMATION
  Report Type: Spontaneous
  Country: JP (occurrence: JP)
  Receive Date: 20130923
  Receipt Date: 20131007
  Transmission Date: 20140711
  Serious: Yes (Life-Threatening)
  Sender: FDA-Public Use
  Company Number: JP-TEVA-431943ISR

PATIENT
  Age: 76 Year
  Sex: Female
  Weight: 59.5 kg

DRUGS (6)
  1. PERAPRIN,INJ,0.5%2ML1AMPOULE [Suspect]
     Indication: ANAESTHETIC PREMEDICATION
     Dosage: 10 MILLIGRAM DAILY;
     Route: 042
     Dates: start: 20130814
  2. HARTMANN^S SOLUTION [Suspect]
     Dosage: 500 ML DAILY;
     Route: 042
     Dates: start: 20130814
  3. MECOBALAMIN TABLETS,500MCG [Concomitant]
  4. AMLODIPINE OD TAB. 2.5MG [Concomitant]
  5. TIMOPTOL XE OPHTHALMIC SOLUTION 0.5% [Concomitant]
  6. KARY UNI OPHTHALMIC SUSPENSION 0.005% [Concomitant]

REACTIONS (2)
  - Bradycardia [Recovering/Resolving]
  - Cardiac arrest [Recovering/Resolving]
